FAERS Safety Report 4554825-2 (Version None)
Quarter: 2005Q1

REPORT INFORMATION
  Report Type: 
  Country: None (occurrence: None)
  Receive Date: 20041227
  Receipt Date: 20041005
  Transmission Date: 20050727
  Serious: Yes (Other)
  Sender: FDA-Public Use
  Company Number: 2004-0007542

PATIENT
  Age: 30 Year
  Sex: Male
  Weight: 61.6892 kg

DRUGS (4)
  1. VIREAD [Suspect]
     Indication: HIV INFECTION
     Dosage: 300 MG, 1 IN 1 D, ORAL
     Route: 048
     Dates: start: 20011218, end: 20040608
  2. LAMIVUDINE [Concomitant]
  3. NVP (NEVIRAPINE) [Concomitant]
  4. ZOLOFT [Concomitant]

REACTIONS (1)
  - FANCONI SYNDROME ACQUIRED [None]
